FAERS Safety Report 12858329 (Version 2)
Quarter: 2016Q4

REPORT INFORMATION
  Report Type: Spontaneous
  Country: US (occurrence: US)
  Receive Date: 20161018
  Receipt Date: 20161028
  Transmission Date: 20170207
  Serious: No
  Sender: FDA-Public Use
  Company Number: US-PFIZER INC-2016484859

PATIENT
  Age: 56 Year
  Sex: Female

DRUGS (1)
  1. IBRANCE [Suspect]
     Active Substance: PALBOCICLIB
     Indication: MALIGNANT NIPPLE NEOPLASM FEMALE
     Dosage: 125 MG, CYCLIC (FOR 21 DAYS ON THEN 7 DAYS OFF)
     Route: 048
     Dates: start: 20161014

REACTIONS (2)
  - Confusional state [Unknown]
  - Feeling abnormal [Unknown]
